FAERS Safety Report 24699636 (Version 1)
Quarter: 2024Q4

REPORT INFORMATION
  Report Type: Spontaneous
  Country: CN (occurrence: CN)
  Receive Date: 20241205
  Receipt Date: 20241205
  Transmission Date: 20250115
  Serious: Yes (Other)
  Sender: SANOFI AVENTIS
  Company Number: CN-SA-2024SA353683

PATIENT
  Age: 50 Year
  Sex: Male
  Weight: 60 kg

DRUGS (9)
  1. ZOLPIDEM TARTRATE [Suspect]
     Active Substance: ZOLPIDEM TARTRATE
     Indication: Sleep disorder
     Dosage: 100 MG, QD
     Route: 048
     Dates: start: 20241118, end: 20241121
  2. DEXAMETHASONE SODIUM PHOSPHATE [Suspect]
     Active Substance: DEXAMETHASONE SODIUM PHOSPHATE
     Indication: Dengue fever
     Dosage: 10 MG, QD
     Route: 041
     Dates: start: 20241117, end: 20241120
  3. SODIUM CHLORIDE [Suspect]
     Active Substance: SODIUM CHLORIDE
     Indication: Vehicle solution use
     Dosage: 100 ML, 1X
     Route: 041
     Dates: start: 20241117, end: 20241119
  4. VITAMIN B6 [Concomitant]
     Active Substance: PYRIDOXINE HYDROCHLORIDE
     Indication: Dengue fever
     Dosage: 100 MG, QD
     Route: 041
     Dates: start: 20241115, end: 20241120
  5. PANTOPRAZOLE SODIUM [Concomitant]
     Active Substance: PANTOPRAZOLE SODIUM
     Dosage: 40 MG, QD
     Route: 048
     Dates: start: 20241115, end: 20241121
  6. DEXTROSE\SODIUM CHLORIDE [Concomitant]
     Active Substance: DEXTROSE\SODIUM CHLORIDE
     Indication: Vehicle solution use
     Dosage: 500 ML, QD
     Route: 041
     Dates: start: 20241115, end: 20241120
  7. NIMODIPINE [Concomitant]
     Active Substance: NIMODIPINE
     Indication: Hyperhomocysteinaemia
     Dosage: 20 MG, TID
     Route: 048
     Dates: start: 20241116, end: 20241121
  8. TEPRENONE [Concomitant]
     Active Substance: TEPRENONE
     Indication: Abdominal discomfort
     Dosage: 50 MG, TID
     Route: 048
     Dates: start: 20241115, end: 20241121
  9. DOMPERIDONE [Concomitant]
     Active Substance: DOMPERIDONE
     Indication: Abdominal discomfort
     Dosage: UNK
     Dates: start: 20241118

REACTIONS (1)
  - Hiccups [Recovered/Resolved]

NARRATIVE: CASE EVENT DATE: 20241118
